FAERS Safety Report 7256250-2 (Version None)
Quarter: 2011Q1

REPORT INFORMATION
  Report Type: 
  Country: None (occurrence: None)
  Receive Date: 20110129
  Receipt Date: 20100615
  Transmission Date: 20110831
  Serious: No
  Sender: FDA-Public Use
  Company Number: US-ABBOTT-10P-163-0645953-00

PATIENT
  Age: 55 Year
  Sex: Female

DRUGS (7)
  1. LISINOPRIL [Concomitant]
     Indication: BLOOD PRESSURE
  2. HUMIRA [Suspect]
     Indication: RHEUMATOID ARTHRITIS
     Dates: start: 20100506
  3. SPIRONOLACTONE [Concomitant]
     Indication: BLOOD PRESSURE
     Dosage: 1/2 OF 500 MG TAB; 250 MG DAILY
  4. FOLIC ACID [Concomitant]
     Indication: FOLATE DEFICIENCY
  5. DIGOXIN [Concomitant]
     Indication: CARDIAC FAILURE CHRONIC
  6. MTX [Concomitant]
     Indication: RHEUMATOID ARTHRITIS
     Dosage: 8 TABS WEEKLY
  7. CARVEDILOL [Concomitant]
     Indication: CARDIAC FAILURE CHRONIC

REACTIONS (3)
  - DRUG DOSE OMISSION [None]
  - INJECTION SITE HAEMORRHAGE [None]
  - WRONG TECHNIQUE IN DRUG USAGE PROCESS [None]
